FAERS Safety Report 20093434 (Version 2)
Quarter: 2021Q4

REPORT INFORMATION
  Report Type: Report from Study
  Country: AU (occurrence: AU)
  Receive Date: 20211121
  Receipt Date: 20211125
  Transmission Date: 20220303
  Serious: Yes (Other)
  Sender: FDA-Public Use
  Company Number: AU-BAYER-2021A251469

PATIENT

DRUGS (1)
  1. EYLEA [Suspect]
     Active Substance: AFLIBERCEPT
     Indication: Neovascular age-related macular degeneration
     Dosage: EVERY SIX TO EIGHT WEEKS RIGHT EYE, TOTAL DOSE AND LAST DOSE PRIOR THE EVENT WEREN OT REPORTED
     Dates: start: 2019

REACTIONS (1)
  - Subretinal fluid [Not Recovered/Not Resolved]
